FAERS Safety Report 5476672-X (Version None)
Quarter: 2007Q4

REPORT INFORMATION
  Report Type: 
  Country: None (occurrence: None)
  Receive Date: 20071001
  Receipt Date: 20070122
  Transmission Date: 20080405
  Serious: Yes (Other)
  Sender: FDA-Public Use
  Company Number: TCI2006A06128

PATIENT
  Age: 64 Year
  Sex: Female

DRUGS (4)
  1. ACTOS [Suspect]
     Indication: DIABETES MELLITUS
     Dosage: 15 MG (15 MG, 1 IN 1 D) PER ORAL
     Route: 048
     Dates: start: 20061225, end: 20061226
  2. CANDESARTAN CILEXETIL [Concomitant]
  3. AMARYL [Concomitant]
  4. PRAVASTATIN [Concomitant]

REACTIONS (2)
  - RASH [None]
  - URTICARIA [None]
